FAERS Safety Report 6971908-8 (Version None)
Quarter: 2010Q3

REPORT INFORMATION
  Report Type: 
  Country: None (occurrence: None)
  Receive Date: 20100908
  Receipt Date: 20100908
  Transmission Date: 20110219
  Serious: Yes (Hospitalization)
  Sender: FDA-Public Use
  Company Number: None

PATIENT
  Sex: Male
  Weight: 60.9 kg

DRUGS (1)
  1. TEMSIROLIMUS [Suspect]
     Indication: METASTATIC CARCINOMA OF THE BLADDER
     Dosage: TEMAIROLIMUS WEEKLY IV
     Route: 042
     Dates: start: 20100702, end: 20100812

REACTIONS (6)
  - ANAEMIA [None]
  - CULTURE URINE POSITIVE [None]
  - ENTEROCOCCUS TEST POSITIVE [None]
  - PYELONEPHRITIS [None]
  - SERRATIA TEST POSITIVE [None]
  - UROSEPSIS [None]
